FAERS Safety Report 14369366 (Version 1)
Quarter: 2018Q1

REPORT INFORMATION
  Report Type: Spontaneous
  Country: US (occurrence: US)
  Receive Date: 20180109
  Receipt Date: 20180109
  Transmission Date: 20180509
  Serious: No
  Sender: FDA-Public Use
  Company Number: US-SHIRE-US201734331

PATIENT

DRUGS (1)
  1. XIIDRA [Suspect]
     Active Substance: LIFITEGRAST
     Indication: DRY EYE
     Dosage: 1 GTT, OU AT HS
     Route: 047

REACTIONS (4)
  - Drug ineffective [Unknown]
  - Vision blurred [Unknown]
  - Instillation site reaction [Unknown]
  - Instillation site pain [Unknown]
